FAERS Safety Report 6520031-5 (Version None)
Quarter: 2009Q4

REPORT INFORMATION
  Report Type: 
  Country: None (occurrence: None)
  Receive Date: 20091229
  Receipt Date: 20091207
  Transmission Date: 20100525
  Serious: No
  Sender: FDA-Public Use
  Company Number: PT-ROCHE-674460

PATIENT
  Age: 9 Month
  Sex: Female
  Weight: 8.1 kg

DRUGS (1)
  1. TAMIFLU [Suspect]
     Indication: H1N1 INFLUENZA
     Dosage: THE PRESCRIBED DOSE WAS 1.7 ML.  TO BE GIVEN TO INFANT: 3MG/KG.  TWICE  DAILY.
     Route: 048
     Dates: start: 20091207, end: 20091208

REACTIONS (2)
  - NO ADVERSE EVENT [None]
  - OVERDOSE [None]
